FAERS Safety Report 23877242 (Version 1)
Quarter: 2024Q2

REPORT INFORMATION
  Report Type: Other
  Country: IT (occurrence: None)
  Receive Date: 20240521
  Receipt Date: 20240521
  Transmission Date: 20240716
  Serious: Yes (Other)
  Sender: FDA-Public Use
  Company Number: IT-ROCHE-3566716

PATIENT
  Age: 16 Year
  Sex: Male
  Weight: 44 kg

DRUGS (12)
  1. RITUXIMAB [Suspect]
     Active Substance: RITUXIMAB
     Indication: Nephrotic syndrome
     Dosage: DOSE, 11TH DOSE ON ADMISSION.
     Route: 042
  2. RITUXIMAB [Suspect]
     Active Substance: RITUXIMAB
     Indication: Acute kidney injury
  3. LOSARTAN [Concomitant]
     Active Substance: LOSARTAN
  4. RAMIPRIL [Concomitant]
     Active Substance: RAMIPRIL
  5. OMEPRAZOLE [Concomitant]
     Active Substance: DONEPEZIL HYDROCHLORIDE\OMEPRAZOLE\OMEPRAZOLE MAGNESIUM
  6. ALLOPURINOL [Concomitant]
     Active Substance: ALLOPURINOL
  7. ACETAMINOPHEN [Concomitant]
     Active Substance: ACETAMINOPHEN
     Dosage: PER DOSE
  8. AMOXICILLIN\CLAVULANIC ACID [Concomitant]
     Active Substance: AMOXICILLIN\CLAVULANIC ACID
     Dosage: PER DOSE
     Route: 042
  9. METHYLPREDNISOLONE [Concomitant]
     Active Substance: METHYLPREDNISOLONE
     Route: 042
  10. PREDNISONE [Concomitant]
     Active Substance: PREDNISONE
     Dosage: PER DOSE
     Route: 048
  11. DAPTOMYCIN [Concomitant]
     Active Substance: DAPTOMYCIN
     Route: 042
  12. MEROPENEM [Concomitant]
     Active Substance: MEROPENEM
     Route: 042

REACTIONS (3)
  - Septic shock [Unknown]
  - Human herpesvirus 6 infection [Unknown]
  - Viral infection [Unknown]
